FAERS Safety Report 12682287 (Version 1)
Quarter: 2016Q3

REPORT INFORMATION
  Report Type: Report from Study
  Country: CA (occurrence: CA)
  Receive Date: 20160824
  Receipt Date: 20160824
  Transmission Date: 20161109
  Serious: Yes (Death)
  Sender: FDA-Public Use
  Company Number: PHHY2016CA108863

PATIENT
  Age: 51 Year
  Sex: Female

DRUGS (1)
  1. VOTRIENT [Suspect]
     Active Substance: PAZOPANIB HYDROCHLORIDE
     Indication: SOFT TISSUE SARCOMA
     Dosage: UNK
     Route: 048
     Dates: start: 20160623, end: 20160727

REACTIONS (6)
  - Feeling abnormal [Unknown]
  - Depressed mood [Unknown]
  - Fatigue [Unknown]
  - Emotional disorder [Unknown]
  - Death [Fatal]
  - Liver disorder [Unknown]

NARRATIVE: CASE EVENT DATE: 20160819
